FAERS Safety Report 22273896 (Version 2)
Quarter: 2023Q2

REPORT INFORMATION
  Report Type: Spontaneous
  Country: US (occurrence: US)
  Receive Date: 20230502
  Receipt Date: 20230622
  Transmission Date: 20230722
  Serious: No
  Sender: FDA-Public Use
  Company Number: US-PFIZER INC-202300169003

PATIENT
  Age: 10 Year
  Sex: Male
  Weight: 34.47 kg

DRUGS (2)
  1. SOMATROPIN [Suspect]
     Active Substance: SOMATROPIN
     Indication: Hypopituitarism
     Dosage: 1.8 MG (1.8MG INJECT ONE SYRINGE UNDER THE SKIN 6 DAYS PER WEEK)
     Route: 058
     Dates: start: 202303
  2. SOMATROPIN [Suspect]
     Active Substance: SOMATROPIN
     Indication: Hypoparathyroidism

REACTIONS (2)
  - Device defective [Unknown]
  - Syringe issue [Unknown]

NARRATIVE: CASE EVENT DATE: 20230101
